FAERS Safety Report 8365031-8 (Version None)
Quarter: 2012Q2

REPORT INFORMATION
  Report Type: 
  Country: None (occurrence: None)
  Receive Date: 20120516
  Receipt Date: 20120403
  Transmission Date: 20120825
  Serious: Yes (Death)
  Sender: FDA-Public Use
  Company Number: JP-GLAXOSMITHKLINE-B0794098A

PATIENT
  Sex: Male

DRUGS (5)
  1. FLOLAN [Suspect]
     Indication: PULMONARY HYPERTENSION
     Dosage: .5NG PER DAY
     Route: 042
     Dates: start: 20120124
  2. TRACLEER [Concomitant]
     Indication: PULMONARY HYPERTENSION
     Dosage: 62.5MG PER DAY
     Route: 048
  3. BERAPROST SODIUM [Concomitant]
     Indication: PULMONARY HYPERTENSION
     Dosage: 120MCG PER DAY
     Route: 048
  4. REVATIO [Concomitant]
     Indication: PULMONARY HYPERTENSION
     Dosage: 3IUAX PER DAY
     Route: 048
  5. FLOLAN [Suspect]
     Dosage: 15NG PER DAY
     Route: 042
     Dates: end: 20120403

REACTIONS (3)
  - DEATH [None]
  - INAPPROPRIATE SCHEDULE OF DRUG ADMINISTRATION [None]
  - NO ADVERSE EVENT [None]
